FAERS Safety Report 16480297 (Version 1)
Quarter: 2019Q2

REPORT INFORMATION
  Report Type: Report from Study
  Country: US (occurrence: US)
  Receive Date: 20190626
  Receipt Date: 20190626
  Transmission Date: 20190711
  Serious: Yes (Other)
  Sender: FDA-Public Use
  Company Number: US-MALLINCKRODT-T201903414

PATIENT
  Age: 60 Year
  Sex: Male

DRUGS (2)
  1. REPOSITORY CORTICOTROPIN INJECTION [Suspect]
     Active Substance: CORTICOTROPIN
     Indication: RHEUMATOID ARTHRITIS
     Dosage: 80 UNITS / 1 ML, 2 TIMES PER WEEK MONDAY AND FRIDAY
     Route: 058
     Dates: start: 20190208, end: 20190607
  2. HYDROCODONE [Concomitant]
     Active Substance: HYDROCODONE
     Indication: PRODUCT USED FOR UNKNOWN INDICATION
     Dosage: UNK
     Route: 065

REACTIONS (9)
  - Systemic lupus erythematosus [Unknown]
  - Hypertension [Unknown]
  - Weight increased [Unknown]
  - Pain [Unknown]
  - Hypersensitivity [Not Recovered/Not Resolved]
  - Urticaria [Recovered/Resolved]
  - Fibromyalgia [Not Recovered/Not Resolved]
  - Fatigue [Unknown]
  - Dyspnoea [Unknown]

NARRATIVE: CASE EVENT DATE: 2019
